FAERS Safety Report 8348649-8 (Version None)
Quarter: 2012Q2

REPORT INFORMATION
  Report Type: 
  Country: None (occurrence: None)
  Receive Date: 20120510
  Receipt Date: 20120501
  Transmission Date: 20120825
  Serious: Yes (Hospitalization)
  Sender: FDA-Public Use
  Company Number: JP-B.I. PHARMACEUTICALS,INC./RIDGEFIELD-2012-BP-06921NB

PATIENT
  Sex: Male
  Weight: 44.1 kg

DRUGS (9)
  1. PRAMIPEXOLE DIHYDROCHLORIDE [Suspect]
     Dosage: 4.5 MG
     Route: 048
     Dates: start: 20120323, end: 20120327
  2. PRAMIPEXOLE DIHYDROCHLORIDE [Suspect]
     Dosage: 3.375 MG
     Route: 048
     Dates: start: 20120221, end: 20120228
  3. PRAMIPEXOLE DIHYDROCHLORIDE [Suspect]
     Indication: PARKINSON'S DISEASE
     Dosage: 3 MG
     Route: 048
     Dates: start: 20120216, end: 20120221
  4. MADOPAR [Concomitant]
     Indication: PARKINSON'S DISEASE
     Route: 048
  5. PRAMIPEXOLE DIHYDROCHLORIDE [Suspect]
     Dosage: 3.75 MG
     Route: 048
     Dates: start: 20120228, end: 20120323
  6. TEGRETOL [Suspect]
     Indication: EPILEPSY
     Dosage: 400 MG
     Route: 048
  7. LADSEN [Concomitant]
     Indication: PARKINSON'S DISEASE
     Dosage: 1 MG
     Route: 048
  8. COMTAN [Concomitant]
     Indication: PARKINSON'S DISEASE
     Route: 048
  9. MAGNESIUM OXIDE [Concomitant]
     Indication: CONSTIPATION
     Route: 048
     Dates: end: 20120301

REACTIONS (6)
  - ABNORMAL BEHAVIOUR [None]
  - PERSECUTORY DELUSION [None]
  - HALLUCINATION [None]
  - PNEUMONIA ASPIRATION [None]
  - NEUROLEPTIC MALIGNANT SYNDROME [None]
  - DELIRIUM [None]
